FAERS Safety Report 6692004-3 (Version None)
Quarter: 2010Q2

REPORT INFORMATION
  Report Type: 
  Country: None (occurrence: None)
  Receive Date: 20100419
  Receipt Date: 20100329
  Transmission Date: 20101027
  Serious: Yes (Hospitalization)
  Sender: FDA-Public Use
  Company Number: 230516K09BRA

PATIENT
  Age: 40 Year
  Sex: Female

DRUGS (5)
  1. REBIF [Suspect]
     Indication: RELAPSING-REMITTING MULTIPLE SCLEROSIS
     Dosage: 22 MCG, 3 IN 1 WK
     Dates: start: 20050323
  2. MANTIDAN (AMANTADINE HYDROCHLORIDE) [Concomitant]
  3. BECLOFEN (BACLOFEN) [Concomitant]
  4. METOPROLOL SUCCINATE [Concomitant]
  5. SERTRALINE HCL [Concomitant]

REACTIONS (7)
  - DYSURIA [None]
  - GAIT DISTURBANCE [None]
  - LOSS OF CONSCIOUSNESS [None]
  - MUSCULAR WEAKNESS [None]
  - PYREXIA [None]
  - URINARY TRACT INFECTION [None]
  - WHEELCHAIR USER [None]
